FAERS Safety Report 4977139-5 (Version None)
Quarter: 2006Q2

REPORT INFORMATION
  Report Type: 
  Country: None (occurrence: None)
  Receive Date: 20060419
  Receipt Date: 20060411
  Transmission Date: 20061013
  Serious: Yes (Hospitalization)
  Sender: FDA-Public Use
  Company Number: FR-ABBOTT-06P-056-0330413-00

PATIENT
  Age: 4 Year
  Sex: Male

DRUGS (2)
  1. MICROPAKINE GRANULE [Suspect]
     Indication: EPILEPSY
     Route: 048
     Dates: end: 20060115
  2. TOPIRAMATE [Suspect]
     Indication: DRUG USE FOR UNKNOWN INDICATION
     Route: 048
     Dates: start: 20051215, end: 20060115

REACTIONS (4)
  - INFLAMMATION [None]
  - PANCREATITIS ACUTE [None]
  - PROTHROMBIN TIME RATIO DECREASED [None]
  - SOMNOLENCE [None]
